FAERS Safety Report 16117786 (Version 7)
Quarter: 2019Q2

REPORT INFORMATION
  Report Type: Report from Study
  Country: AR (occurrence: AR)
  Receive Date: 20190326
  Receipt Date: 20190621
  Transmission Date: 20190711
  Serious: Yes (Disabling)
  Sender: FDA-Public Use
  Company Number: AR-SA-2019SA080555

PATIENT
  Age: 26 Year
  Sex: Male
  Weight: 69 kg

DRUGS (1)
  1. IMIGLUCERASE [Suspect]
     Active Substance: IMIGLUCERASE
     Indication: GAUCHER^S DISEASE
     Dosage: 10 DF, QOW
     Route: 042
     Dates: start: 2000, end: 20190321

REACTIONS (5)
  - Pain in extremity [Recovering/Resolving]
  - Discomfort [Recovering/Resolving]
  - Bone lesion [Recovering/Resolving]
  - Fatigue [Recovering/Resolving]
  - Hypotension [Recovering/Resolving]

NARRATIVE: CASE EVENT DATE: 20190321
